FAERS Safety Report 8835511 (Version 1)
Quarter: 2012Q4

REPORT INFORMATION
  Report Type: 
  Country: DE (occurrence: DE)
  Receive Date: 20121011
  Receipt Date: 20121011
  Transmission Date: 20130627
  Serious: Yes (Other)
  Sender: FDA-Public Use
  Company Number: GXKR2012DE003082

PATIENT

DRUGS (2)
  1. CLOZAPINE [Suspect]
     Indication: SCHIZOPHRENIA, PARANOID TYPE
     Dosage: 25 mg/week
  2. CLOZAPINE [Suspect]
     Dosage: 250 mg/day
     Route: 048
     Dates: start: 201203

REACTIONS (2)
  - Aphasia [Recovered/Resolved]
  - Logorrhoea [Recovered/Resolved]
